FAERS Safety Report 13489307 (Version 2)
Quarter: 2017Q2

REPORT INFORMATION
  Report Type: Spontaneous
  Country: JP (occurrence: JP)
  Receive Date: 20170427
  Receipt Date: 20170525
  Transmission Date: 20170830
  Serious: Yes (Death, Other)
  Sender: FDA-Public Use
  Company Number: JP-PFIZER INC-2017179017

PATIENT
  Age: 47 Year
  Sex: Female

DRUGS (9)
  1. INVEGA [Concomitant]
     Active Substance: PALIPERIDONE
  2. LYRICA [Suspect]
     Active Substance: PREGABALIN
     Dosage: UNK
     Route: 048
  3. DOMPERIDON [Concomitant]
     Active Substance: DOMPERIDONE
  4. FLUNITRAZEPAM [Concomitant]
     Active Substance: FLUNITRAZEPAM
  5. HALOPERIDOL. [Suspect]
     Active Substance: HALOPERIDOL
     Dosage: UNK
  6. MAGNESIUM OXIDE. [Concomitant]
     Active Substance: MAGNESIUM OXIDE
  7. TRAMAL [Concomitant]
     Active Substance: TRAMADOL
  8. RUEFRIEN [Concomitant]
     Active Substance: GLUTAMINE\SODIUM GUALENATE
  9. BROTIZOLAM [Concomitant]
     Active Substance: BROTIZOLAM

REACTIONS (4)
  - Acute kidney injury [Fatal]
  - Loss of consciousness [Not Recovered/Not Resolved]
  - Rhabdomyolysis [Fatal]
  - Overdose [Unknown]

NARRATIVE: CASE EVENT DATE: 201704
